FAERS Safety Report 7301577-9 (Version None)
Quarter: 2011Q1

REPORT INFORMATION
  Report Type: 
  Country: None (occurrence: None)
  Receive Date: 20110218
  Receipt Date: 20110210
  Transmission Date: 20110831
  Serious: No
  Sender: FDA-Public Use
  Company Number: DE-ELI_LILLY_AND_COMPANY-DE201102002674

PATIENT
  Sex: Female

DRUGS (2)
  1. ZYPADHERA [Suspect]
     Indication: PSYCHOTIC DISORDER
     Route: 030
  2. LEPONEX [Concomitant]

REACTIONS (2)
  - VAGINAL HAEMORRHAGE [None]
  - PSYCHOTIC DISORDER [None]
